FAERS Safety Report 8104126-0 (Version None)
Quarter: 2012Q1

REPORT INFORMATION
  Report Type: 
  Country: None (occurrence: None)
  Receive Date: 20120201
  Receipt Date: 20120124
  Transmission Date: 20120608
  Serious: Yes (Other)
  Sender: FDA-Public Use
  Company Number: US-AMGEN-USASP2012004945

PATIENT
  Age: 36 Year
  Sex: Female

DRUGS (1)
  1. ENBREL [Suspect]
     Indication: PSORIATIC ARTHROPATHY
     Dosage: 25 MG, 2 TIMES/WK
     Dates: start: 20021102, end: 20111019

REACTIONS (4)
  - MULTIPLE SCLEROSIS [None]
  - ARTHRALGIA [None]
  - CENTRAL NERVOUS SYSTEM LESION [None]
  - OPTIC NEURITIS [None]
